FAERS Safety Report 6863009-4 (Version None)
Quarter: 2010Q2

REPORT INFORMATION
  Report Type: 
  Country: None (occurrence: None)
  Receive Date: 20100528
  Receipt Date: 20100319
  Transmission Date: 20101027
  Serious: No
  Sender: FDA-Public Use
  Company Number: 009023

PATIENT
  Age: 80 Year
  Sex: Female

DRUGS (2)
  1. LACOSAMIDE [Suspect]
     Dosage: 50 MG BID, 100 MG BID
  2. DILANTIN [Suspect]

REACTIONS (5)
  - AGITATION [None]
  - DISTURBANCE IN ATTENTION [None]
  - MEDICATION ERROR [None]
  - MOOD ALTERED [None]
  - SOMNOLENCE [None]
